FAERS Safety Report 10881847 (Version 1)
Quarter: 2015Q1

REPORT INFORMATION
  Report Type: Spontaneous
  Country: US (occurrence: None)
  Receive Date: 20150225
  Receipt Date: 20150225
  Transmission Date: 20150721
  Serious: No
  Sender: FDA-Public Use
  Company Number: None

PATIENT
  Age: 61 Year
  Sex: Male
  Weight: 90.72 kg

DRUGS (1)
  1. VENTOLIN HFA [Suspect]
     Active Substance: ALBUTEROL SULFATE
     Indication: ASTHMA EXERCISE INDUCED
     Dosage: 2 PUFFS BY MOUTH AS NEEDED ?TAKEN BY MOUTH
     Dates: start: 20150202, end: 20150223

REACTIONS (4)
  - Device issue [None]
  - Wheezing [None]
  - Drug effect decreased [None]
  - Incorrect dose administered by device [None]

NARRATIVE: CASE EVENT DATE: 20150207
